APPROVED DRUG PRODUCT: CHLORTHALIDONE
Active Ingredient: CHLORTHALIDONE
Strength: 25MG
Dosage Form/Route: TABLET;ORAL
Application: A088164 | Product #001
Applicant: ANI PHARMACEUTICALS INC
Approved: Jan 9, 1984 | RLD: No | RS: No | Type: DISCN